FAERS Safety Report 17411747 (Version 2)
Quarter: 2020Q1

REPORT INFORMATION
  Report Type: Report from Study
  Country: None (occurrence: US)
  Receive Date: 20200213
  Receipt Date: 20200315
  Transmission Date: 20200409
  Serious: Yes (Hospitalization)
  Sender: FDA-Public Use
  Company Number: US-ABBVIE-20K-163-3239237-00

PATIENT
  Age: 22 Year
  Sex: Female

DRUGS (3)
  1. HUMIRA [Suspect]
     Active Substance: ADALIMUMAB
     Dosage: CITRATE FREE
     Route: 058
     Dates: start: 20200131
  2. HUMIRA [Suspect]
     Active Substance: ADALIMUMAB
     Indication: COLITIS ULCERATIVE
     Dosage: DAY 1
     Route: 058
     Dates: start: 20200103, end: 20200103
  3. HUMIRA [Suspect]
     Active Substance: ADALIMUMAB
     Dosage: DAY 15
     Route: 058
     Dates: start: 20200117, end: 20200117

REACTIONS (13)
  - Malaise [Recovering/Resolving]
  - Loss of personal independence in daily activities [Recovering/Resolving]
  - Irritable bowel syndrome [Unknown]
  - Insomnia [Not Recovered/Not Resolved]
  - Depressed mood [Not Recovered/Not Resolved]
  - Colitis ulcerative [Not Recovered/Not Resolved]
  - Vomiting [Recovering/Resolving]
  - Influenza [Recovered/Resolved]
  - Nausea [Recovering/Resolving]
  - Decreased appetite [Recovering/Resolving]
  - Pain [Not Recovered/Not Resolved]
  - Urinary tract infection [Not Recovered/Not Resolved]
  - Anxiety [Not Recovered/Not Resolved]

NARRATIVE: CASE EVENT DATE: 202001
